FAERS Safety Report 9111597 (Version 2)
Quarter: 2014Q1

REPORT INFORMATION
  Report Type: Spontaneous
  Country: US (occurrence: US)
  Receive Date: 20130219
  Receipt Date: 20140213
  Transmission Date: 20141002
  Serious: No
  Sender: FDA-Public Use
  Company Number: US-BRISTOL-MYERS SQUIBB COMPANY-17069220

PATIENT
  Age: 74 Year
  Sex: Female
  Weight: 49.43 kg

DRUGS (1)
  1. ORENCIA [Suspect]
     Indication: RHEUMATOID ARTHRITIS
     Dosage: RECENT DOSE:01APR2013
     Route: 042

REACTIONS (2)
  - Herpes simplex [Unknown]
  - Rheumatoid arthritis [Recovering/Resolving]
